FAERS Safety Report 14243984 (Version 2)
Quarter: 2018Q1

REPORT INFORMATION
  Report Type: Spontaneous
  Country: BR (occurrence: BR)
  Receive Date: 20171201
  Receipt Date: 20180315
  Transmission Date: 20180508
  Serious: No
  Sender: FDA-Public Use
  Company Number: BR-PFIZER INC-2017510269

PATIENT
  Age: 57 Year
  Sex: Male

DRUGS (1)
  1. SUTENT [Suspect]
     Active Substance: SUNITINIB MALATE
     Indication: RENAL CANCER
     Dosage: UNK, CYCLIC (28/14)
     Route: 048
     Dates: start: 2017

REACTIONS (6)
  - Blister [Unknown]
  - Gait disturbance [Not Recovered/Not Resolved]
  - Inflammation [Unknown]
  - Dyspnoea [Not Recovered/Not Resolved]
  - Peripheral swelling [Unknown]
  - Dry skin [Unknown]

NARRATIVE: CASE EVENT DATE: 2017
